FAERS Safety Report 20854067 (Version 1)
Quarter: 2022Q2

REPORT INFORMATION
  Report Type: Report from Study
  Country: IT (occurrence: IT)
  Receive Date: 20220520
  Receipt Date: 20220520
  Transmission Date: 20220721
  Serious: Yes (Hospitalization)
  Sender: FDA-Public Use
  Company Number: None

PATIENT
  Age: 89 Year
  Sex: Female

DRUGS (3)
  1. QUETIAPINE [Suspect]
     Active Substance: QUETIAPINE
     Indication: Product used for unknown indication
     Dosage: 25 MILLIGRAM, TOTAL (1 DOSAGE FORM TOTAL, COATED WITH FILM)
     Route: 048
     Dates: start: 20211212, end: 20211212
  2. HYDROCHLOROTHIAZIDE\LOSARTAN POTASSIUM [Concomitant]
     Active Substance: HYDROCHLOROTHIAZIDE\LOSARTAN POTASSIUM
     Dosage: UNK
     Route: 048
  3. LUMIGAN [Concomitant]
     Active Substance: BIMATOPROST
     Dosage: 0.3 MILLIGRAM PER MILLILITRE (EYE DROPS, SOLUTION, IN SINGLE-DOSE CONTAINER)
     Route: 047

REACTIONS (1)
  - Presyncope [Recovering/Resolving]

NARRATIVE: CASE EVENT DATE: 20211213
